FAERS Safety Report 7898741-7 (Version None)
Quarter: 2011Q4

REPORT INFORMATION
  Report Type: 
  Country: None (occurrence: None)
  Receive Date: 20111107
  Receipt Date: 20110719
  Transmission Date: 20120403
  Serious: No
  Sender: FDA-Public Use
  Company Number: US-ABBOTT-11P-163-0840428-00

PATIENT
  Sex: Male

DRUGS (1)
  1. TRICOR [Suspect]
     Indication: PRODUCT USED FOR UNKNOWN INDICATION

REACTIONS (4)
  - FATIGUE [None]
  - COUGH [None]
  - INCREASED UPPER AIRWAY SECRETION [None]
  - LOSS OF CONSCIOUSNESS [None]
